FAERS Safety Report 15650852 (Version 1)
Quarter: 2018Q4

REPORT INFORMATION
  Report Type: Spontaneous
  Country: US (occurrence: US)
  Receive Date: 20181123
  Receipt Date: 20181123
  Transmission Date: 20190205
  Serious: Yes (Other)
  Sender: FDA-Public Use
  Company Number: US-BIO PRODUCTS LABORATORY LTD-2059222

PATIENT
  Age: 54 Year
  Sex: Female

DRUGS (6)
  1. MESTINON [Concomitant]
     Active Substance: PYRIDOSTIGMINE BROMIDE
  2. METFORMIN HYDROCHLORIDE. [Concomitant]
     Active Substance: METFORMIN HYDROCHLORIDE
  3. GAMMAPLEX [Suspect]
     Active Substance: HUMAN IMMUNOGLOBULIN G
  4. SOLU-MEDROL [Concomitant]
     Active Substance: METHYLPREDNISOLONE SODIUM SUCCINATE
  5. AMITIZA [Concomitant]
     Active Substance: LUBIPROSTONE
  6. LISINOPRIL. [Concomitant]
     Active Substance: LISINOPRIL

REACTIONS (8)
  - Wheezing [Unknown]
  - Musculoskeletal stiffness [Unknown]
  - Headache [Unknown]
  - Weight increased [Unknown]
  - Hepatic enzyme increased [Unknown]
  - Meningitis aseptic [Unknown]
  - Bone pain [Unknown]
  - Abdominal mass [Unknown]
